FAERS Safety Report 19891138 (Version 3)
Quarter: 2022Q3

REPORT INFORMATION
  Report Type: Report from Study
  Country: ZA (occurrence: ZA)
  Receive Date: 20210927
  Receipt Date: 20220824
  Transmission Date: 20221027
  Serious: Yes (Hospitalization, Other)
  Sender: FDA-Public Use
  Company Number: ZA-NOVOPROD-848988

PATIENT
  Age: 69 Year
  Sex: Female
  Weight: 69 kg

DRUGS (3)
  1. INDAPAMIDE\PERINDOPRIL ERBUMINE [Concomitant]
     Active Substance: INDAPAMIDE\PERINDOPRIL ERBUMINE
     Indication: Hypertension
     Dosage: 5/1.25 MG
     Route: 048
  2. METFORMIN HYDROCHLORIDE [Concomitant]
     Active Substance: METFORMIN HYDROCHLORIDE
     Indication: Diabetes mellitus
     Dosage: 850 MG
     Route: 048
  3. ESTRADIOL HEMIHYDRATE [Suspect]
     Active Substance: ESTRADIOL HEMIHYDRATE
     Indication: Hormone therapy
     Dosage: 1 MG, QD
     Route: 048

REACTIONS (1)
  - Spinal operation [Recovering/Resolving]
